FAERS Safety Report 4733305-5 (Version None)
Quarter: 2005Q3

REPORT INFORMATION
  Report Type: 
  Country: None (occurrence: None)
  Receive Date: 20050721
  Receipt Date: 20050513
  Transmission Date: 20060218
  Serious: No
  Sender: FDA-Public Use
  Company Number: 2005SP000821

PATIENT
  Age: 56 Year
  Sex: Female

DRUGS (3)
  1. LUNESTA [Suspect]
     Indication: MIDDLE INSOMNIA
     Dosage: 2 MG;UNKNOWN;ORAL
     Route: 048
     Dates: start: 20050507, end: 20050507
  2. VITAMINS [Concomitant]
  3. SONATA [Concomitant]

REACTIONS (4)
  - DRUG INEFFECTIVE [None]
  - DYSGEUSIA [None]
  - MALAISE [None]
  - MIDDLE INSOMNIA [None]
